FAERS Safety Report 7374492-2 (Version None)
Quarter: 2011Q1

REPORT INFORMATION
  Report Type: 
  Country: None (occurrence: None)
  Receive Date: 20110325
  Receipt Date: 20110114
  Transmission Date: 20110831
  Serious: No
  Sender: FDA-Public Use
  Company Number: US-MYLANLABS-2011S1001179

PATIENT
  Age: 63 Year
  Sex: Female
  Weight: 89.81 kg

DRUGS (1)
  1. FENTANYL-100 [Suspect]
     Indication: FIBROMYALGIA
     Dosage: CHANGED Q 72 HOURS.
     Route: 062
     Dates: start: 20060101

REACTIONS (3)
  - PAIN [None]
  - INCORRECT PRODUCT STORAGE [None]
  - DRUG INEFFECTIVE [None]
